FAERS Safety Report 8806187 (Version 3)
Quarter: 2013Q1

REPORT INFORMATION
  Report Type: Spontaneous
  Country: NO (occurrence: NO)
  Receive Date: 20120925
  Receipt Date: 20130121
  Transmission Date: 20140127
  Serious: Yes (Life-Threatening)
  Sender: FDA-Public Use
  Company Number: PHHY2012NO081333

PATIENT
  Age: 46 Year
  Sex: Male

DRUGS (1)
  1. GILENYA [Suspect]
     Indication: MULTIPLE SCLEROSIS
     Route: 048
     Dates: start: 20120420, end: 20120907

REACTIONS (2)
  - Bladder transitional cell carcinoma [Recovered/Resolved]
  - Haematuria [Recovered/Resolved]
